FAERS Safety Report 10499085 (Version 1)
Quarter: 2014Q4

REPORT INFORMATION
  Report Type: Spontaneous
  Country: US (occurrence: US)
  Receive Date: 20141006
  Receipt Date: 20141006
  Transmission Date: 20150528
  Serious: No
  Sender: FDA-Public Use
  Company Number: US-AMGEN INC.-USASP2013082098

PATIENT
  Sex: Female

DRUGS (2)
  1. FULVESTRANT [Concomitant]
     Active Substance: FULVESTRANT
  2. XGEVA [Suspect]
     Active Substance: DENOSUMAB
     Indication: METASTASES TO BONE
     Dosage: UNK
     Route: 065
     Dates: start: 20121220

REACTIONS (7)
  - Muscle spasms [Unknown]
  - Arthralgia [Unknown]
  - Musculoskeletal stiffness [Unknown]
  - Injection site pain [Unknown]
  - Pain [Unknown]
  - Bone pain [Unknown]
  - Injection site haemorrhage [Unknown]
